FAERS Safety Report 8796569 (Version 1)
Quarter: 2012Q4

REPORT INFORMATION
  Report Type: Report from Study
  Country: CA (occurrence: CA)
  Receive Date: 20120920
  Receipt Date: 20120920
  Transmission Date: 20130627
  Serious: Yes (Death)
  Sender: FDA-Public Use
  Company Number: CA-ROCHE-1131355

PATIENT
  Sex: Female
  Weight: 77.18 kg

DRUGS (4)
  1. AVASTIN [Suspect]
     Indication: COLORECTAL CANCER
     Route: 042
     Dates: start: 20110428, end: 20120207
  2. NORVASC [Concomitant]
  3. TRAZODONE [Concomitant]
  4. CIPRALEX [Concomitant]

REACTIONS (1)
  - Disease progression [Fatal]
